FAERS Safety Report 26099508 (Version 1)
Quarter: 2025Q4

REPORT INFORMATION
  Report Type: Spontaneous
  Country: CN (occurrence: CN)
  Receive Date: 20251128
  Receipt Date: 20251128
  Transmission Date: 20260117
  Serious: Yes (Hospitalization, Other)
  Sender: Kenvue
  Company Number: CN-KENVUE-20251108767

PATIENT
  Age: 9 Day
  Weight: 1.54 kg

DRUGS (1)
  1. CHILDRENS MOTRIN [Suspect]
     Active Substance: IBUPROFEN
     Indication: Patent ductus arteriosus
     Dosage: 0.4 MILLILITER, ONCE A DAY

REACTIONS (2)
  - Off label use [Unknown]
  - Gastrointestinal haemorrhage [Recovering/Resolving]
